FAERS Safety Report 9701986 (Version 1)
Quarter: 2013Q4

REPORT INFORMATION
  Report Type: Spontaneous
  Country: US (occurrence: US)
  Receive Date: 20131121
  Receipt Date: 20131121
  Transmission Date: 20140711
  Serious: Yes (Other)
  Sender: FDA-Public Use
  Company Number: CHPA2013US017263

PATIENT
  Age: 67 Year
  Sex: Female

DRUGS (4)
  1. EXCEDRIN SINUS HEADACHE [Suspect]
     Indication: SINUS HEADACHE
     Dosage: 1 DF, UNK
     Route: 048
  2. EXCEDRIN MIGRAINE [Suspect]
     Indication: MIGRAINE
     Dosage: 1 DF, UNK
  3. EXCEDRIN MIGRAINE [Suspect]
     Indication: SINUS HEADACHE
  4. EXCEDRIN MIGRAINE [Suspect]
     Indication: OFF LABEL USE

REACTIONS (5)
  - Tooth infection [Not Recovered/Not Resolved]
  - Toothache [Not Recovered/Not Resolved]
  - Nasopharyngitis [Recovered/Resolved]
  - Underdose [Unknown]
  - Therapeutic response unexpected [Unknown]
